FAERS Safety Report 4493059-7 (Version None)
Quarter: 2004Q4

REPORT INFORMATION
  Report Type: 
  Country: None (occurrence: None)
  Receive Date: 20041101
  Receipt Date: 20041019
  Transmission Date: 20050328
  Serious: Yes (Hospitalization)
  Sender: FDA-Public Use
  Company Number: 209768

PATIENT
  Age: 73 Year
  Sex: Female

DRUGS (6)
  1. RITUXAN [Suspect]
     Indication: LYMPHOMA
  2. OXALIPLATIN (OXALIPLATIN) [Suspect]
     Indication: LYMPHOMA
  3. GEMCITABINE (GEMCITABINE HYDROCHLORIDE) [Suspect]
     Indication: LYMPHOMA
  4. ACEBUTOLOL [Concomitant]
  5. ASPIRIN [Concomitant]
  6. OMEPRAZOLE [Concomitant]

REACTIONS (1)
  - AGRANULOCYTOSIS [None]
